FAERS Safety Report 23811709 (Version 2)
Quarter: 2024Q2

REPORT INFORMATION
  Report Type: Spontaneous
  Country: FR (occurrence: FR)
  Receive Date: 20240503
  Receipt Date: 20240509
  Transmission Date: 20240716
  Serious: No
  Sender: FDA-Public Use
  Company Number: FR-SANDOZ-SDZ2023FR049796

PATIENT
  Age: 18 Year
  Sex: Male

DRUGS (1)
  1. OMNITROPE [Suspect]
     Active Substance: SOMATROPIN
     Indication: Product used for unknown indication
     Dosage: OMNITROPE 15 MG/1.5 ML (3.4MG 6J/7 FOR 8 YEARS)
     Route: 065

REACTIONS (2)
  - Product dose omission issue [Unknown]
  - Device defective [Unknown]
